FAERS Safety Report 18206122 (Version 1)
Quarter: 2020Q3

REPORT INFORMATION
  Report Type: Report from Study
  Country: IN (occurrence: IN)
  Receive Date: 20200827
  Receipt Date: 20200827
  Transmission Date: 20201103
  Serious: Yes (Death, Hospitalization, Other)
  Sender: FDA-Public Use
  Company Number: IN-BRISTOL-MYERS SQUIBB COMPANY-BMS-2020-036641

PATIENT
  Age: 74 Year
  Sex: Male

DRUGS (1)
  1. NIVOLUMAB [Suspect]
     Active Substance: NIVOLUMAB
     Indication: NON-SMALL CELL LUNG CANCER
     Dosage: 200 MILLIGRAM, Q2WK
     Route: 042
     Dates: start: 20200304, end: 20200522

REACTIONS (6)
  - Asthenia [Unknown]
  - Heart rate increased [Unknown]
  - Cough [Unknown]
  - Death [Fatal]
  - Pleural effusion [Unknown]
  - Amnesia [Unknown]

NARRATIVE: CASE EVENT DATE: 20200602
